FAERS Safety Report 24702999 (Version 1)
Quarter: 2024Q4

REPORT INFORMATION
  Report Type: Spontaneous
  Country: ES (occurrence: ES)
  Receive Date: 20241205
  Receipt Date: 20241205
  Transmission Date: 20250114
  Serious: Yes (Hospitalization, Disabling)
  Sender: AMGEN
  Company Number: None

PATIENT
  Age: 44 Year
  Sex: Female

DRUGS (2)
  1. ADALIMUMAB [Suspect]
     Active Substance: ADALIMUMAB
     Indication: Hidradenitis
     Dosage: 80 MG EVERY 2 WEEKS
     Route: 058
     Dates: start: 20210803, end: 20230228
  2. INFLIXIMAB [Suspect]
     Active Substance: INFLIXIMAB
     Indication: Hidradenitis
     Dosage: 5 MG/KG
     Route: 040
     Dates: start: 20230302, end: 20230315

REACTIONS (2)
  - Psychogenic blindness [Recovering/Resolving]
  - Optic neuritis [Recovering/Resolving]

NARRATIVE: CASE EVENT DATE: 20230315
